FAERS Safety Report 4844587-3 (Version None)
Quarter: 2005Q4

REPORT INFORMATION
  Report Type: 
  Country: None (occurrence: None)
  Receive Date: 20051125
  Receipt Date: 20051114
  Transmission Date: 20060501
  Serious: Yes (Other)
  Sender: FDA-Public Use
  Company Number: 2005156086

PATIENT
  Sex: Female
  Weight: 63.5036 kg

DRUGS (8)
  1. CELEBREX [Suspect]
     Indication: RHEUMATOID ARTHRITIS
     Dosage: 200 MG (200 MG, 1 IN 1 D),
     Dates: start: 20020101
  2. VOLTAREN [Suspect]
     Indication: RHEUMATOID ARTHRITIS
     Dates: start: 20050101, end: 20050101
  3. PREVACID [Concomitant]
  4. PREDNISONE [Concomitant]
  5. LASIX [Concomitant]
  6. PROZAC [Concomitant]
  7. ALL OTHER THERAPEUTIC PRODUCTS (ALL OTHER THERAPEUTIC PRODUCTS) [Concomitant]
  8. POTASSIUM (POTASSIUM) [Concomitant]

REACTIONS (6)
  - COLONIC POLYP [None]
  - DIARRHOEA [None]
  - ECONOMIC PROBLEM [None]
  - MALAISE [None]
  - PAIN [None]
  - TREATMENT NONCOMPLIANCE [None]
